FAERS Safety Report 5050249-2 (Version None)
Quarter: 2006Q3

REPORT INFORMATION
  Report Type: 
  Country: None (occurrence: None)
  Receive Date: 20060713
  Receipt Date: 20060621
  Transmission Date: 20061208
  Serious: Yes (Hospitalization)
  Sender: FDA-Public Use
  Company Number: US-AVENTIS-200616580GDDC

PATIENT
  Age: 10 Year
  Sex: Male
  Weight: 33 kg

DRUGS (4)
  1. APIDRA [Suspect]
     Indication: DIABETES MELLITUS INSULIN-DEPENDENT
     Dosage: DOSE UNIT: UNITS
     Route: 058
     Dates: start: 20060405
  2. AUTOPEN INSULIN INJECTION PEN [Suspect]
     Route: 058
     Dates: start: 20060405
  3. LANTUS [Suspect]
     Indication: DIABETES MELLITUS INSULIN-DEPENDENT
     Route: 058
     Dates: start: 20060405
  4. OPTIPEN (INSULIN PUMP) [Suspect]
     Route: 058
     Dates: start: 20060405

REACTIONS (11)
  - BLOOD ALKALINE PHOSPHATASE INCREASED [None]
  - BLOOD GLUCOSE INCREASED [None]
  - CONVULSION [None]
  - ECCHYMOSIS [None]
  - FALL [None]
  - HEAD INJURY [None]
  - HEADACHE [None]
  - HYPOGLYCAEMIA [None]
  - HYPOGLYCAEMIC SEIZURE [None]
  - POST CONCUSSION SYNDROME [None]
  - VOMITING [None]
